FAERS Safety Report 6981727-4 (Version None)
Quarter: 2010Q3

REPORT INFORMATION
  Report Type: 
  Country: None (occurrence: None)
  Receive Date: 20100914
  Receipt Date: 20091030
  Transmission Date: 20110219
  Serious: No
  Sender: FDA-Public Use
  Company Number: US-PFIZER INC-2009256246

PATIENT
  Sex: Female
  Weight: 72.6 kg

DRUGS (3)
  1. LYRICA [Suspect]
     Indication: FIBROMYALGIA
     Dosage: 50 MG, 3X/DAY
     Route: 048
     Dates: end: 20090801
  2. LEVOTHYROXINE SODIUM [Concomitant]
     Dosage: UNK
  3. CITALOPRAM [Concomitant]
     Dosage: UNK

REACTIONS (5)
  - CARPAL TUNNEL SYNDROME [None]
  - DYSGEUSIA [None]
  - HYPOAESTHESIA ORAL [None]
  - MUSCULOSKELETAL STIFFNESS [None]
  - PARAESTHESIA [None]
